FAERS Safety Report 17463241 (Version 1)
Quarter: 2020Q1

REPORT INFORMATION
  Report Type: Spontaneous
  Country: IT (occurrence: IT)
  Receive Date: 20200226
  Receipt Date: 20200226
  Transmission Date: 20200409
  Serious: Yes (Hospitalization, Other)
  Sender: FDA-Public Use
  Company Number: IT-SHIRE-IT202006951

PATIENT

DRUGS (2)
  1. MESAVANCOL [Suspect]
     Active Substance: MESALAMINE
     Indication: COLITIS ULCERATIVE
     Route: 048
     Dates: start: 20180601, end: 20190601
  2. CORTIMENT [BUDESONIDE] [Suspect]
     Active Substance: BUDESONIDE
     Indication: COLITIS ULCERATIVE
     Dosage: 9 MILLIGRAM, 1X/DAY:QD
     Route: 048
     Dates: start: 20190301, end: 20190601

REACTIONS (1)
  - Myocarditis septic [Recovered/Resolved]

NARRATIVE: CASE EVENT DATE: 20190601
